FAERS Safety Report 8358394-0 (Version None)
Quarter: 2012Q2

REPORT INFORMATION
  Report Type: 
  Country: None (occurrence: None)
  Receive Date: 20120514
  Receipt Date: 20110718
  Transmission Date: 20120825
  Serious: Yes (Other)
  Sender: FDA-Public Use
  Company Number: US-ALEXION-A201100673

PATIENT
  Sex: Female

DRUGS (3)
  1. CLARITIN [Concomitant]
  2. FOLIC ACID [Concomitant]
     Indication: PAROXYSMAL NOCTURNAL HAEMOGLOBINURIA
     Dosage: UNK, QD
  3. SOLIRIS [Suspect]
     Indication: PAROXYSMAL NOCTURNAL HAEMOGLOBINURIA
     Dosage: 900 MG, Q12DAYS
     Route: 042

REACTIONS (4)
  - FATIGUE [None]
  - BLOOD LACTATE DEHYDROGENASE INCREASED [None]
  - HYPERSENSITIVITY [None]
  - HAEMOGLOBIN DECREASED [None]
